FAERS Safety Report 26104644 (Version 1)
Quarter: 2025Q4

REPORT INFORMATION
  Report Type: Spontaneous
  Country: US (occurrence: US)
  Receive Date: 20251130
  Receipt Date: 20251130
  Transmission Date: 20260118
  Serious: Yes (Hospitalization, Other)
  Sender: MAIA PHARMACEUTICALS
  Company Number: US-MAI-MAI202511-000183

PATIENT
  Age: 63 Year
  Sex: Male

DRUGS (1)
  1. BACLOFEN [Suspect]
     Active Substance: BACLOFEN
     Indication: Muscle spasticity
     Dosage: UNKNOWN
     Route: 037

REACTIONS (7)
  - Cardiac arrest [Unknown]
  - Acute myocardial infarction [Unknown]
  - Cardiac failure [Unknown]
  - Respiratory failure [Unknown]
  - Bradycardia [Unknown]
  - Renal failure [Unknown]
  - Overdose [Unknown]
